FAERS Safety Report 21655259 (Version 1)
Quarter: 2022Q4

REPORT INFORMATION
  Report Type: Other
  Country: None (occurrence: TN)
  Receive Date: 20221129
  Receipt Date: 20221129
  Transmission Date: 20230112
  Serious: Yes (Other)
  Sender: FDA-Public Use
  Company Number: TN-Eywa Pharma Inc.-2135334

PATIENT
  Age: 5 Year
  Sex: Female

DRUGS (1)
  1. OXYBUTYNIN CHLORIDE [Suspect]
     Active Substance: OXYBUTYNIN CHLORIDE
     Indication: Hypertonic bladder
     Route: 065

REACTIONS (1)
  - Blindness [Not Recovered/Not Resolved]
